FAERS Safety Report 15788408 (Version 6)
Quarter: 2019Q3

REPORT INFORMATION
  Report Type: Report from Study
  Country: DE (occurrence: DE)
  Receive Date: 20190104
  Receipt Date: 20190703
  Transmission Date: 20191004
  Serious: No
  Sender: FDA-Public Use
  Company Number: DE-ROCHE-2239793

PATIENT
  Age: 34 Year
  Sex: Female

DRUGS (8)
  1. TOLPERISONE [Concomitant]
     Active Substance: TOLPERISONE
     Route: 065
  2. SPASMEX [TROSPIUM CHLORIDE] [Concomitant]
     Route: 065
  3. OCREVUS [Suspect]
     Active Substance: OCRELIZUMAB
     Indication: SECONDARY PROGRESSIVE MULTIPLE SCLEROSIS
     Route: 042
     Dates: start: 20181106
  4. OCREVUS [Suspect]
     Active Substance: OCRELIZUMAB
     Route: 042
     Dates: start: 20190508
  5. SATIVEX [Concomitant]
     Active Substance: NABIXIMOLS
     Dosage: UP TO 8 TIMES PER DAY
     Route: 065
  6. VITAMIN D3 [Concomitant]
     Active Substance: CHOLECALCIFEROL
     Route: 065
  7. OCREVUS [Suspect]
     Active Substance: OCRELIZUMAB
     Route: 042
     Dates: start: 20181120
  8. GABAPENTIN. [Concomitant]
     Active Substance: GABAPENTIN
     Route: 065

REACTIONS (7)
  - Gastrointestinal infection [Recovered/Resolved]
  - Intentional product use issue [Unknown]
  - Nasopharyngitis [Recovered/Resolved]
  - Muscle spasticity [Not Recovered/Not Resolved]
  - Palpitations [Recovered/Resolved]
  - Fatigue [Recovered/Resolved]
  - Off label use [Unknown]

NARRATIVE: CASE EVENT DATE: 20181106
